FAERS Safety Report 24107579 (Version 1)
Quarter: 2024Q3

REPORT INFORMATION
  Report Type: Spontaneous
  Country: US (occurrence: US)
  Receive Date: 20240718
  Receipt Date: 20240718
  Transmission Date: 20241017
  Serious: Yes (Hospitalization, Other)
  Sender: AMGEN
  Company Number: US-AMGEN-USASP2024135592

PATIENT
  Age: 59 Year
  Sex: Male

DRUGS (4)
  1. PREDNISONE [Suspect]
     Active Substance: PREDNISONE
     Indication: PASH syndrome
     Dosage: UNK (TAPER)
     Route: 065
  2. PREDNISONE [Suspect]
     Active Substance: PREDNISONE
     Dosage: UNK (DOSE DECREASED)
     Route: 065
  3. PREDNISONE [Suspect]
     Active Substance: PREDNISONE
     Dosage: 5 MILLIGRAM, QD (DOSE DECREASED)
     Route: 065
  4. CLINDAMYCIN [Concomitant]
     Active Substance: CLINDAMYCIN
     Dosage: UNK
     Route: 048

REACTIONS (6)
  - Hyperglycaemia [Unknown]
  - Hypokalaemia [Unknown]
  - Pyoderma gangrenosum [Recovering/Resolving]
  - Adverse drug reaction [Unknown]
  - Off label use [Unknown]
  - Drug effective for unapproved indication [Unknown]
